FAERS Safety Report 23849802 (Version 1)
Quarter: 2024Q2

REPORT INFORMATION
  Report Type: Spontaneous
  Country: US (occurrence: None)
  Receive Date: 20240511
  Receipt Date: 20240511
  Transmission Date: 20240716
  Serious: Yes (Hospitalization)
  Sender: FDA-Public Use
  Company Number: None

PATIENT
  Age: 77 Year
  Sex: Male
  Weight: 136 kg

DRUGS (2)
  1. CASIRIVIMAB [Suspect]
     Active Substance: CASIRIVIMAB
     Indication: COVID-19 prophylaxis
     Dosage: 600 MG ONCE IV
     Route: 042
     Dates: start: 20210910, end: 20210910
  2. IMDEVIMAB [Suspect]
     Active Substance: IMDEVIMAB
     Indication: COVID-19 prophylaxis
     Dosage: 600 MG ONCE IV
     Route: 042
     Dates: start: 20210910, end: 20210910

REACTIONS (4)
  - Vomiting [None]
  - Dehydration [None]
  - SARS-CoV-2 test positive [None]
  - Infusion related reaction [None]

NARRATIVE: CASE EVENT DATE: 20210910
